FAERS Safety Report 17256523 (Version 4)
Quarter: 2022Q1

REPORT INFORMATION
  Report Type: Report from Study
  Country: DE (occurrence: None)
  Receive Date: 20200110
  Receipt Date: 20220207
  Transmission Date: 20220423
  Serious: Yes (Hospitalization)
  Sender: FDA-Public Use
  Company Number: DE-ROCHE-2404065

PATIENT
  Age: 32 Year
  Sex: Female

DRUGS (4)
  1. ATEZOLIZUMAB [Suspect]
     Active Substance: ATEZOLIZUMAB
     Indication: Ovarian cancer
     Dosage: ON 27/DEC/2018, SHE RECEIVED LAST DOSE OF ATEZOLIZUMAB/PLACEBO BEFORE THE EVENT.
     Route: 041
     Dates: start: 20180925
  2. BEVACIZUMAB [Suspect]
     Active Substance: BEVACIZUMAB
     Indication: Ovarian cancer
     Dosage: ON 27/DEC/2018, SHE RECEIVED LAST DOSE OF BEVACIZUMAB (15 MG/KG) BEFORE THE EVENT.
     Route: 042
     Dates: start: 20180925
  3. CARBOPLATIN [Concomitant]
     Active Substance: CARBOPLATIN
     Indication: Ovarian cancer
     Dosage: ON 27/DEC/2018, SHE RECEIVED LAST DOSE OF CARBOPLATIN (486 MG) BEFORE THE EVENT.
     Route: 042
     Dates: start: 20180925, end: 20200117
  4. GEMCITABINE [Concomitant]
     Active Substance: GEMCITABINE
     Indication: Ovarian cancer
     Dosage: ON 27/DEC/2018, SHE RECEIVED LAST DOSE OF GEMCITABIN (750 MG/M2) BEFORE THE EVENT.
     Route: 042
     Dates: start: 20180925, end: 20200117

REACTIONS (1)
  - Pyrexia [Recovered/Resolved]

NARRATIVE: CASE EVENT DATE: 20190112
